FAERS Safety Report 10179633 (Version 1)
Quarter: 2014Q2

REPORT INFORMATION
  Report Type: Spontaneous
  Country: US (occurrence: US)
  Receive Date: 20140519
  Receipt Date: 20140519
  Transmission Date: 20141212
  Serious: No
  Sender: FDA-Public Use
  Company Number: US-PFIZER INC-2014133835

PATIENT
  Age: 66 Year
  Sex: Female
  Weight: 95.92 kg

DRUGS (1)
  1. LYRICA [Suspect]
     Dosage: UNK
     Dates: start: 20121207

REACTIONS (1)
  - Mental status changes [Unknown]
